FAERS Safety Report 14242070 (Version 1)
Quarter: 2017Q4

REPORT INFORMATION
  Report Type: Spontaneous
  Country: US (occurrence: US)
  Receive Date: 20171201
  Receipt Date: 20171201
  Transmission Date: 20180321
  Serious: No
  Sender: FDA-Public Use
  Company Number: US-TEVA-719607USA

PATIENT

DRUGS (1)
  1. CLOZAPINE. [Suspect]
     Active Substance: CLOZAPINE

REACTIONS (1)
  - Eosinophil count increased [Recovered/Resolved]
